FAERS Safety Report 25978472 (Version 1)
Quarter: 2025Q4

REPORT INFORMATION
  Report Type: Other
  Country: EU (occurrence: EU)
  Receive Date: 20251030
  Receipt Date: 20251030
  Transmission Date: 20260118
  Serious: Yes (Hospitalization)
  Sender: ZYDUS PHARM
  Company Number: None

PATIENT

DRUGS (13)
  1. ACETAMINOPHEN\TRAMADOL [Suspect]
     Active Substance: ACETAMINOPHEN\TRAMADOL
     Indication: Back pain
     Dosage: UNK
     Route: 048
     Dates: start: 20240805
  2. BRINTELLIX [Suspect]
     Active Substance: VORTIOXETINE HYDROBROMIDE
     Indication: Adjustment disorder with depressed mood
     Dosage: 10 MILLIGRAM
     Route: 048
     Dates: start: 20250925
  3. ACETAMINOPHEN [Concomitant]
     Active Substance: ACETAMINOPHEN
     Indication: Renal colic
     Dosage: 1000 MILLIGRAM
     Route: 048
     Dates: start: 20241203
  4. ALDACTONE [Concomitant]
     Active Substance: SPIRONOLACTONE
     Indication: Dysuria
     Dosage: 100 MILLIGRAM
     Route: 048
     Dates: start: 20250308
  5. CLOBEX [Concomitant]
     Active Substance: CLOBETASOL PROPIONATE
     Indication: Systemic lupus erythematosus
     Dosage: 7.5 MILLILITER
     Route: 065
     Dates: start: 20181016
  6. FAMOTIDINA CINFA [Concomitant]
     Indication: Hepatic cirrhosis
     Dosage: 20 MILLIGRAM
     Route: 048
     Dates: start: 20250911
  7. CALCIFEDIOL [Concomitant]
     Active Substance: CALCIFEDIOL
     Indication: Dysuria
     Dosage: 16000.0 UI
     Route: 048
     Dates: start: 20250426
  8. FERROUS SULFATE [Concomitant]
     Active Substance: FERROUS SULFATE
     Indication: Renal colic
     Dosage: 105.0 MILLIGRAM
     Route: 048
     Dates: start: 20250426
  9. ELIDEL [Concomitant]
     Active Substance: PIMECROLIMUS
     Indication: Systemic lupus erythematosus
     Dosage: UNK
     Route: 065
     Dates: start: 20250325
  10. FUROSEMIDE [Concomitant]
     Active Substance: FUROSEMIDE
     Indication: Cervical dysplasia
     Dosage: 40 MILLIGRAM
     Route: 048
     Dates: start: 20250308
  11. ZOLPIDEM TARTRATE [Concomitant]
     Active Substance: ZOLPIDEM TARTRATE
     Indication: Insomnia
     Dosage: 10 MILLIGRAM
     Route: 048
     Dates: start: 20250827
  12. PROPRANOLOL KERN [Concomitant]
     Indication: Hepatic cirrhosis
     Dosage: 10 MILLIGRAM
     Route: 048
     Dates: start: 20250307
  13. RIFAXIMIN [Concomitant]
     Active Substance: RIFAXIMIN
     Indication: Encephalopathy
     Dosage: 400 MILLIGRAM
     Route: 048
     Dates: start: 20250819

REACTIONS (3)
  - Disorientation [Recovering/Resolving]
  - Dizziness [Recovering/Resolving]
  - Confusional state [Recovering/Resolving]

NARRATIVE: CASE EVENT DATE: 20251005
